FAERS Safety Report 9405757 (Version 1)
Quarter: 2013Q3

REPORT INFORMATION
  Report Type: Spontaneous
  Country: CN (occurrence: CN)
  Receive Date: 20130717
  Receipt Date: 20130717
  Transmission Date: 20140515
  Serious: Yes (Hospitalization, Other)
  Sender: FDA-Public Use
  Company Number: CN-WATSON-2013-12147

PATIENT
  Age: 25 Year
  Sex: Male
  Weight: 60 kg

DRUGS (6)
  1. ISOFLURANE (UNKNOWN) [Suspect]
     Indication: MAINTENANCE OF ANAESTHESIA
     Dosage: 1-2 VOL %
     Route: 065
  2. FENTANYL (UNKNOWN) [Suspect]
     Indication: INDUCTION OF ANAESTHESIA
     Dosage: 1.5 ?G/KG, SINGLE
     Route: 065
  3. PROPOFOL [Suspect]
     Indication: INDUCTION OF ANAESTHESIA
     Dosage: 2 MG/KG, SINGLE
     Route: 065
  4. VECURONIUM [Concomitant]
     Indication: ENDOTRACHEAL INTUBATION
     Dosage: 0.1 MG/KG, SINGLE
     Route: 065
  5. PHENOBARBITAL [Concomitant]
     Indication: PRODUCT USED FOR UNKNOWN INDICATION
     Dosage: 100 MG, SINGLE
     Route: 030
  6. ATROPINE [Concomitant]
     Indication: PRODUCT USED FOR UNKNOWN INDICATION
     Dosage: 0.5 MG, SINGLE
     Route: 030

REACTIONS (7)
  - Rhabdomyolysis [Recovered/Resolved with Sequelae]
  - Hyperthermia malignant [Recovered/Resolved]
  - Renal failure acute [Recovered/Resolved]
  - Anuria [Recovered/Resolved]
  - Disseminated intravascular coagulation [Recovered/Resolved]
  - Acute respiratory distress syndrome [Recovered/Resolved]
  - Blood pressure decreased [Unknown]
